FAERS Safety Report 10727758 (Version 1)
Quarter: 2015Q1

REPORT INFORMATION
  Report Type: Report from Study
  Country: US (occurrence: US)
  Receive Date: 20150121
  Receipt Date: 20150121
  Transmission Date: 20150721
  Serious: No
  Sender: FDA-Public Use
  Company Number: US-GLAXOSMITHKLINE-US2015GSK007416

PATIENT
  Age: 50 Year
  Sex: Male

DRUGS (1)
  1. FLUTICASONE PROPIONATE+SALMETEROL XINAFOATE INHALATIONAL POWDER [Suspect]
     Active Substance: FLUTICASONE PROPIONATE\SALMETEROL XINAFOATE
     Indication: ASTHMA
     Dosage: 230/21MCG, U
     Route: 065

REACTIONS (4)
  - Asthma [Unknown]
  - Candida infection [Unknown]
  - Drug ineffective [Unknown]
  - Emergency care [Unknown]

NARRATIVE: CASE EVENT DATE: 2014
